FAERS Safety Report 10622897 (Version 1)
Quarter: 2014Q4

REPORT INFORMATION
  Report Type: Spontaneous
  Country: FR (occurrence: FR)
  Receive Date: 20141203
  Receipt Date: 20141203
  Transmission Date: 20150529
  Serious: Yes (Other)
  Sender: FDA-Public Use
  Company Number: FR-JNJFOC-20141119147

PATIENT
  Age: 32 Year
  Sex: Female

DRUGS (1)
  1. INFLIXIMAB, RECOMBINANT [Suspect]
     Active Substance: INFLIXIMAB
     Indication: PUSTULAR PSORIASIS
     Dosage: DOSE OF 5 MG/KG AT WEEKS 0, 2,AND 6, AND THEN EVERY 2 MONTHS
     Route: 042

REACTIONS (2)
  - Pseudolymphoma [Recovered/Resolved]
  - Lymphadenopathy [Recovered/Resolved]
